FAERS Safety Report 8116679-7 (Version None)
Quarter: 2012Q1

REPORT INFORMATION
  Report Type: 
  Country: None (occurrence: None)
  Receive Date: 20120206
  Receipt Date: 20120124
  Transmission Date: 20120608
  Serious: Yes (Other)
  Sender: FDA-Public Use
  Company Number: PHEH2011US011609

PATIENT
  Sex: Female

DRUGS (3)
  1. GLEEVEC [Suspect]
     Dosage: 600 MG, DAILY
     Route: 048
     Dates: start: 20111026
  2. GLEEVEC [Suspect]
     Indication: CHRONIC MYELOID LEUKAEMIA
     Dosage: 600 MG, DAILY
     Route: 048
     Dates: start: 20111017
  3. DIURETICS [Concomitant]
     Dosage: UNK UKN, UNK

REACTIONS (4)
  - MUSCLE SPASMS [None]
  - OEDEMA PERIPHERAL [None]
  - PERIORBITAL OEDEMA [None]
  - CYSTITIS [None]
